FAERS Safety Report 9337995 (Version 2)
Quarter: 2014Q2

REPORT INFORMATION
  Report Type: Report from Study
  Country: US (occurrence: US)
  Receive Date: 20130609
  Receipt Date: 20140424
  Transmission Date: 20141212
  Serious: Yes (Hospitalization)
  Sender: FDA-Public Use
  Company Number: PHEH2013US012365

PATIENT
  Age: 39 Year
  Sex: Male
  Weight: 63 kg

DRUGS (8)
  1. TOBI [Suspect]
     Indication: CYSTIC FIBROSIS
     Dosage: 300 MG, BID
     Route: 055
  2. TOBI [Suspect]
     Indication: CYSTIC FIBROSIS LUNG
  3. TOBI PODHALER [Suspect]
     Indication: CYSTIC FIBROSIS
     Dosage: 112 MG, BID
     Route: 055
     Dates: start: 2013, end: 2013
  4. TOBI PODHALER [Suspect]
     Indication: CYSTIC FIBROSIS LUNG
  5. ALBUTEROL [Concomitant]
     Dosage: UNK UKN, UNK
  6. AZITHROMYCIN [Concomitant]
     Dosage: UNK UKN, UNK
  7. ZENPEP [Concomitant]
     Dosage: UNK UKN, UNK
  8. DOXYCYCLINE [Concomitant]
     Dosage: UNK UKN, UNK

REACTIONS (6)
  - Fatigue [Recovering/Resolving]
  - Asthenia [Recovering/Resolving]
  - Dyspnoea [Recovering/Resolving]
  - Cough [Recovering/Resolving]
  - Increased bronchial secretion [Unknown]
  - Hypokinesia [Unknown]
